FAERS Safety Report 8049565-1 (Version None)
Quarter: 2012Q1

REPORT INFORMATION
  Report Type: 
  Country: None (occurrence: None)
  Receive Date: 20120117
  Receipt Date: 20120110
  Transmission Date: 20120608
  Serious: Yes (Hospitalization)
  Sender: FDA-Public Use
  Company Number: FR-PFIZER INC-2011121854

PATIENT
  Age: 22 Year
  Sex: Female

DRUGS (4)
  1. OXOMEMAZINE [Suspect]
     Indication: INFLUENZA LIKE ILLNESS
     Dosage: UNK
     Route: 048
     Dates: start: 20110205, end: 20110208
  2. TAMIFLU [Suspect]
     Indication: INFLUENZA LIKE ILLNESS
     Dosage: 75 MG
     Route: 048
     Dates: start: 20110205, end: 20110208
  3. NAPHAZOLINE HCL [Suspect]
     Indication: INFLUENZA LIKE ILLNESS
     Dosage: UNK
     Route: 045
     Dates: start: 20110205, end: 20110208
  4. IBUPROFEN (ADVIL) [Suspect]
     Indication: INFLUENZA LIKE ILLNESS
     Dosage: UNK
     Route: 048
     Dates: start: 20110205, end: 20110208

REACTIONS (2)
  - DERMATITIS EXFOLIATIVE [None]
  - HISTIOCYTOSIS HAEMATOPHAGIC [None]
